FAERS Safety Report 4718926-8 (Version None)
Quarter: 2005Q3

REPORT INFORMATION
  Report Type: 
  Country: None (occurrence: None)
  Receive Date: 20050720
  Receipt Date: 20050718
  Transmission Date: 20060218
  Serious: Yes (Life-Threatening, Hospitalization)
  Sender: FDA-Public Use
  Company Number: 2005-02404

PATIENT
  Age: 77 Year
  Sex: Male

DRUGS (8)
  1. NIFEDIPINE [Suspect]
     Dosage: 60 MG, Q  12 HOURS, ORAL
     Route: 048
  2. CLARITHROMYCIN [Suspect]
     Dosage: 500 MG, Q 12 HOURS, UNK
  3. DOXAZOSIN [Concomitant]
  4. CAPTOPRIL [Concomitant]
  5. VALSARTAN [Concomitant]
  6. CEFUROXIME [Concomitant]
  7. ERYTHROMYCIN [Concomitant]
  8. FUROSEMIDE [Concomitant]

REACTIONS (2)
  - DRUG INTERACTION [None]
  - SHOCK [None]
